FAERS Safety Report 13619968 (Version 1)
Quarter: 2017Q2

REPORT INFORMATION
  Report Type: Spontaneous
  Country: US (occurrence: US)
  Receive Date: 20170607
  Receipt Date: 20170607
  Transmission Date: 20170830
  Serious: Yes (Hospitalization, Disabling, Other)
  Sender: FDA-Public Use
  Company Number: None

PATIENT
  Age: 49 Year
  Sex: Female
  Weight: 111.23 kg

DRUGS (1)
  1. IBUPROFEN 800MG AMNEAL [Suspect]
     Active Substance: IBUPROFEN
     Indication: PAIN
     Dosage: 800 MG.  3X /DAILY PILL

REACTIONS (2)
  - Contusion [None]
  - Peripheral swelling [None]

NARRATIVE: CASE EVENT DATE: 201704
